FAERS Safety Report 7055791-0 (Version None)
Quarter: 2010Q4

REPORT INFORMATION
  Report Type: 
  Country: None (occurrence: None)
  Receive Date: 20101021
  Receipt Date: 20101013
  Transmission Date: 20110411
  Serious: Yes (Hospitalization)
  Sender: FDA-Public Use
  Company Number: FR-ROCHE-734019

PATIENT
  Sex: Female

DRUGS (5)
  1. HERCEPTIN [Suspect]
     Dosage: 8 MG/KG, DEPENDING ON CYCLE
     Route: 042
     Dates: start: 20100902, end: 20100902
  2. TAXOTERE [Suspect]
     Dosage: 100MG/M2, DEPENDING ON CYCLE
     Route: 042
     Dates: start: 20100903, end: 20100903
  3. TEGRETOL [Concomitant]
     Dosage: 400
     Dates: start: 20071107
  4. XANAX [Concomitant]
     Dosage: 0.25
     Dates: start: 20091101
  5. MEBEVERINE [Concomitant]
     Dosage: 200
     Dates: start: 20091101

REACTIONS (1)
  - PANCYTOPENIA [None]
